FAERS Safety Report 4528603-4 (Version None)
Quarter: 2004Q4

REPORT INFORMATION
  Report Type: 
  Country: None (occurrence: None)
  Receive Date: 20041216
  Receipt Date: 20041209
  Transmission Date: 20050328
  Serious: Yes (Life-Threatening, Other)
  Sender: FDA-Public Use
  Company Number: PHBS2004JP16524

PATIENT
  Age: 7 Month
  Weight: 3 kg

DRUGS (1)
  1. AREDIA [Suspect]
     Indication: OSTEOGENESIS IMPERFECTA
     Dosage: UNK, UNK
     Route: 042
     Dates: start: 20041201, end: 20041201

REACTIONS (9)
  - APNOEA [None]
  - BLOOD CHLORIDE DECREASED [None]
  - BLOOD PHOSPHORUS INCREASED [None]
  - BLOOD POTASSIUM INCREASED [None]
  - BLOOD SODIUM DECREASED [None]
  - BRADYCARDIA [None]
  - ELECTROLYTE IMBALANCE [None]
  - INTUBATION [None]
  - RENAL DISORDER [None]
